FAERS Safety Report 6379897-4 (Version None)
Quarter: 2009Q3

REPORT INFORMATION
  Report Type: 
  Country: None (occurrence: None)
  Receive Date: 20090928
  Receipt Date: 20090922
  Transmission Date: 20100115
  Serious: Yes (Death, Hospitalization)
  Sender: FDA-Public Use
  Company Number: PHEH2009US10155

PATIENT
  Sex: Male
  Weight: 67.4 kg

DRUGS (1)
  1. EXJADE [Suspect]
     Indication: IRON OVERLOAD
     Dosage: 1500 MG/DAY
     Route: 048
     Dates: start: 20070531, end: 20090902

REACTIONS (3)
  - CONFUSIONAL STATE [None]
  - DEATH [None]
  - HAEMORRHAGE INTRACRANIAL [None]
